FAERS Safety Report 10213204 (Version 1)
Quarter: 2014Q2

REPORT INFORMATION
  Report Type: Spontaneous
  Country: US (occurrence: US)
  Receive Date: 20140603
  Receipt Date: 20140603
  Transmission Date: 20141212
  Serious: Yes (Other)
  Sender: FDA-Public Use
  Company Number: US-AMGEN-USASP2014039637

PATIENT
  Sex: Female

DRUGS (1)
  1. PROLIA [Suspect]
     Indication: OSTEOPOROSIS POSTMENOPAUSAL
     Route: 065

REACTIONS (4)
  - Paralysis [Recovering/Resolving]
  - Muscular weakness [Recovered/Resolved]
  - Gait disturbance [Recovered/Resolved]
  - Asthenia [Recovering/Resolving]
